FAERS Safety Report 5498592-7 (Version None)
Quarter: 2007Q4

REPORT INFORMATION
  Report Type: 
  Country: None (occurrence: None)
  Receive Date: 20071024
  Receipt Date: 20071012
  Transmission Date: 20080405
  Serious: Yes (Hospitalization)
  Sender: FDA-Public Use
  Company Number: GXKR2007US08831

PATIENT
  Age: 36 Year
  Sex: Male

DRUGS (3)
  1. BUSPIRONE (NGX) (BUSPIRONE) UNKNOWN [Suspect]
     Dosage: ORAL
     Route: 048
  2. TRAZODONE (NGX) (TRAZOSONE) UNKNOWN [Suspect]
     Dosage: ORAL
     Route: 048
  3. ETHANOL (ETHANOL) [Concomitant]

REACTIONS (2)
  - ELECTROCARDIOGRAM QT PROLONGED [None]
  - OVERDOSE [None]
